FAERS Safety Report 7819574-3 (Version None)
Quarter: 2011Q4

REPORT INFORMATION
  Report Type: 
  Country: None (occurrence: None)
  Receive Date: 20111018
  Receipt Date: 20111013
  Transmission Date: 20120403
  Serious: Yes (Hospitalization)
  Sender: FDA-Public Use
  Company Number: DE-SANOFI-AVENTIS-2011SA066931

PATIENT
  Age: 42 Year
  Sex: Female
  Weight: 116 kg

DRUGS (5)
  1. CYCLOPHOSPHAMIDE [Suspect]
     Indication: BREAST CANCER
     Route: 041
     Dates: start: 20110830, end: 20110830
  2. PALONOSETRON [Concomitant]
     Indication: PROPHYLAXIS
     Route: 042
     Dates: start: 20110830, end: 20110830
  3. CLEMASTINE FUMARATE [Concomitant]
     Indication: PROPHYLAXIS
     Route: 042
     Dates: start: 20110830, end: 20110830
  4. RANITIDINE [Concomitant]
     Indication: PROPHYLAXIS
     Route: 042
     Dates: start: 20110830, end: 20110830
  5. DOCETAXEL [Suspect]
     Indication: BREAST CANCER
     Route: 041
     Dates: start: 20110830, end: 20110830

REACTIONS (1)
  - SUTURE RUPTURE [None]
